FAERS Safety Report 13376613 (Version 1)
Quarter: 2017Q1

REPORT INFORMATION
  Report Type: Spontaneous
  Country: US (occurrence: US)
  Receive Date: 20170327
  Receipt Date: 20170327
  Transmission Date: 20170429
  Serious: Yes (Hospitalization)
  Sender: FDA-Public Use
  Company Number: None

PATIENT
  Age: 21 Year
  Sex: Male
  Weight: 63 kg

DRUGS (2)
  1. INVEGA SUSTENNA [Suspect]
     Active Substance: PALIPERIDONE PALMITATE
     Indication: SCHIZOPHRENIA
     Dosage: ?          OTHER FREQUENCY:MONTHLY;?
     Route: 030
     Dates: start: 20170221, end: 20170221
  2. OLANZAPINE. [Concomitant]
     Active Substance: OLANZAPINE

REACTIONS (11)
  - Neuroleptic malignant syndrome [None]
  - Hypotension [None]
  - Heart rate increased [None]
  - Body temperature increased [None]
  - Refusal of treatment by patient [None]
  - Vomiting [None]
  - Chills [None]
  - Muscle spasms [None]
  - Tachycardia [None]
  - Back pain [None]
  - Tremor [None]

NARRATIVE: CASE EVENT DATE: 20170321
